FAERS Safety Report 18065865 (Version 2)
Quarter: 2021Q1

REPORT INFORMATION
  Report Type: Report from Study
  Country: US (occurrence: US)
  Receive Date: 20200724
  Receipt Date: 20210126
  Transmission Date: 20210419
  Serious: Yes (Death, Other)
  Sender: FDA-Public Use
  Company Number: US-ROCHE-2502743

PATIENT
  Age: 66 Year
  Sex: Female
  Weight: 81.3 kg

DRUGS (23)
  1. HYDROCHLOROTHIAZIDE. [Concomitant]
     Active Substance: HYDROCHLOROTHIAZIDE
  2. MEMANTINE. [Concomitant]
     Active Substance: MEMANTINE
  3. OMEPRAZOLE. [Concomitant]
     Active Substance: OMEPRAZOLE
  4. SERTRALINE [Concomitant]
     Active Substance: SERTRALINE HYDROCHLORIDE
  5. ATEZOLIZUMAB. [Suspect]
     Active Substance: ATEZOLIZUMAB
     Indication: SMALL CELL LUNG CANCER
     Dosage: LAST ADMINISTERED DATE: 19/NOV/2019
     Route: 042
     Dates: start: 20190821, end: 20191119
  6. FLUTICASONE. [Concomitant]
     Active Substance: FLUTICASONE
  7. INSULIN GLARGINE [Concomitant]
     Active Substance: INSULIN GLARGINE
  8. LORATADINE. [Concomitant]
     Active Substance: LORATADINE
  9. TRAMADOL. [Concomitant]
     Active Substance: TRAMADOL
  10. ALBUTEROL. [Concomitant]
     Active Substance: ALBUTEROL
  11. AMOXICILLIN CLAVULANIC ACID [Concomitant]
     Active Substance: AMOXICILLIN\CLAVULANIC ACID
  12. ONDANSETRON [Concomitant]
     Active Substance: ONDANSETRON
  13. FLUTICASONE;VILANTEROL [Concomitant]
     Active Substance: FLUTICASONE FUROATE\VILANTEROL TRIFENATATE
  14. PROCHLORPERAZINE. [Concomitant]
     Active Substance: PROCHLORPERAZINE
  15. ATORVASTATIN [Concomitant]
     Active Substance: ATORVASTATIN
  16. METFORMIN [Concomitant]
     Active Substance: METFORMIN HYDROCHLORIDE
  17. CISPLATIN. [Suspect]
     Active Substance: CISPLATIN
     Indication: SMALL CELL LUNG CANCER
     Dosage: 08/OCT/2019: THE LAST ROUND OF CISPLATIN
     Route: 065
     Dates: start: 20190724
  18. ETOPOSIDE. [Suspect]
     Active Substance: ETOPOSIDE
     Indication: SMALL CELL LUNG CANCER
     Dosage: 08/OCT/2019: THE LAST ROUND OF ETOPOSIDE
     Route: 065
     Dates: start: 20190723
  19. GLYBURIDE. [Concomitant]
     Active Substance: GLYBURIDE
  20. HYDROCODONE/ACETAMINOPHEN [Concomitant]
     Active Substance: ACETAMINOPHEN\HYDROCODONE
  21. METHIMAZOLE. [Concomitant]
     Active Substance: METHIMAZOLE
  22. ACETAMINOPHEN;CODEINE [Concomitant]
     Active Substance: ACETAMINOPHEN\CODEINE PHOSPHATE
  23. GLIPIZIDE. [Concomitant]
     Active Substance: GLIPIZIDE

REACTIONS (2)
  - Death [Fatal]
  - Hypoxia [Recovered/Resolved]

NARRATIVE: CASE EVENT DATE: 20191206
